FAERS Safety Report 8386762-X (Version None)
Quarter: 2012Q2

REPORT INFORMATION
  Report Type: 
  Country: None (occurrence: None)
  Receive Date: 20120525
  Receipt Date: 20120521
  Transmission Date: 20120825
  Serious: Yes (Death)
  Sender: FDA-Public Use
  Company Number: FR-ASTRAZENECA-2012SE32631

PATIENT
  Sex: Male

DRUGS (5)
  1. CORDARONE [Suspect]
     Dates: start: 20100708, end: 20100901
  2. ANTIBIOTIC DRUGS [Concomitant]
  3. DIGOXIN [Concomitant]
  4. CRESTOR [Suspect]
     Indication: HYPERCHOLESTEROLAEMIA
     Route: 048
     Dates: end: 20100916
  5. ZOCOR [Suspect]
     Indication: HYPERCHOLESTEROLAEMIA

REACTIONS (2)
  - LUNG DISORDER [None]
  - PNEUMONIA [None]
